FAERS Safety Report 17656490 (Version 1)
Quarter: 2020Q2

REPORT INFORMATION
  Report Type: Spontaneous
  Country: US (occurrence: US)
  Receive Date: 20200410
  Receipt Date: 20200410
  Transmission Date: 20200713
  Serious: No
  Sender: FDA-Public Use
  Company Number: US-VERTEX PHARMACEUTICALS-2020-006031

PATIENT
  Age: 29 Year
  Sex: Female

DRUGS (1)
  1. TRIKAFTA [Suspect]
     Active Substance: ELEXACAFTOR\IVACAFTOR\TEZACAFTOR
     Indication: CYSTIC FIBROSIS
     Dosage: 2 TABLETS AM, 1 TABLET PM, BID
     Route: 048
     Dates: start: 20191213

REACTIONS (6)
  - Paranasal sinus hypersecretion [Not Recovered/Not Resolved]
  - Influenza [Recovering/Resolving]
  - Nausea [Recovering/Resolving]
  - Cough [Recovering/Resolving]
  - Headache [Recovered/Resolved]
  - Nausea [Recovered/Resolved]

NARRATIVE: CASE EVENT DATE: 20191220
